FAERS Safety Report 23760714 (Version 1)
Quarter: 2024Q2

REPORT INFORMATION
  Report Type: Spontaneous
  Country: CN (occurrence: CN)
  Receive Date: 20240419
  Receipt Date: 20240419
  Transmission Date: 20240716
  Serious: Yes (Life-Threatening)
  Sender: FDA-Public Use
  Company Number: CN-BEIGENE-BGN-2024-005874

PATIENT

DRUGS (6)
  1. TISLELIZUMAB [Suspect]
     Active Substance: TISLELIZUMAB
     Indication: Oesophageal squamous cell carcinoma
     Dosage: 200 MILLIGRAM
     Route: 041
     Dates: start: 20240403
  2. TISLELIZUMAB [Suspect]
     Active Substance: TISLELIZUMAB
     Indication: Gastric cancer
  3. DOCETAXEL [Suspect]
     Active Substance: DOCETAXEL\DOCETAXEL ANHYDROUS
     Indication: Oesophageal squamous cell carcinoma
     Dosage: 90 MILLIGRAM
     Route: 041
     Dates: start: 20240403
  4. DOCETAXEL [Suspect]
     Active Substance: DOCETAXEL\DOCETAXEL ANHYDROUS
     Indication: Gastric cancer
  5. LOBAPLATIN [Suspect]
     Active Substance: LOBAPLATIN
     Indication: Oesophageal squamous cell carcinoma
     Dosage: 40 MILLIGRAM
     Dates: start: 20240403
  6. LOBAPLATIN [Suspect]
     Active Substance: LOBAPLATIN
     Indication: Gastric cancer

REACTIONS (3)
  - Septic shock [Not Recovered/Not Resolved]
  - Myelosuppression [Not Recovered/Not Resolved]
  - Diarrhoea [Recovering/Resolving]

NARRATIVE: CASE EVENT DATE: 20240415
